FAERS Safety Report 5290413-0 (Version None)
Quarter: 2007Q2

REPORT INFORMATION
  Report Type: 
  Country: None (occurrence: None)
  Receive Date: 20070405
  Receipt Date: 20070405
  Transmission Date: 20071010
  Serious: No
  Sender: FDA-Public Use
  Company Number: None

PATIENT
  Age: 27 Year
  Sex: Female

DRUGS (4)
  1. SPIRONOLACTONE [Suspect]
     Indication: AGITATION
     Dosage: TABLET  100S
  2. SPIRONOLACTONE [Suspect]
     Indication: DEPRESSION
     Dosage: TABLET  100S
  3. SPIRONOLACTONE [Suspect]
     Indication: PSYCHOTIC DISORDER
     Dosage: TABLET  100S
  4. SEROQUEL [Suspect]
     Dosage: TABLET  100S

REACTIONS (4)
  - DRUG DISPENSING ERROR [None]
  - MEDICATION ERROR [None]
  - THERAPEUTIC RESPONSE UNEXPECTED [None]
  - WRONG DRUG ADMINISTERED [None]
